FAERS Safety Report 18399643 (Version 1)
Quarter: 2020Q4

REPORT INFORMATION
  Report Type: Spontaneous
  Country: US (occurrence: US)
  Receive Date: 20201019
  Receipt Date: 20201019
  Transmission Date: 20210114
  Serious: Yes (Hospitalization, Other)
  Sender: FDA-Public Use
  Company Number: US-PURDUE-USA-2020-0169346

PATIENT
  Sex: Female

DRUGS (8)
  1. HYDROMORPHONE TABLETS [Suspect]
     Active Substance: HYDROMORPHONE
     Indication: PRODUCT USED FOR UNKNOWN INDICATION
     Dosage: UNK
     Route: 048
  2. HYDROCODONE BITARTRATE AND ACETAMINOPHEN [Suspect]
     Active Substance: ACETAMINOPHEN\HYDROCODONE BITARTRATE
     Indication: PRODUCT USED FOR UNKNOWN INDICATION
     Dosage: UNK
     Route: 048
  3. DILAUDID [Suspect]
     Active Substance: HYDROMORPHONE HYDROCHLORIDE
     Indication: PRODUCT USED FOR UNKNOWN INDICATION
     Dosage: UNK
     Route: 048
  4. MS CONTIN [Suspect]
     Active Substance: MORPHINE SULFATE
     Indication: PRODUCT USED FOR UNKNOWN INDICATION
     Dosage: UNK
     Route: 048
  5. MORPHINE SULFATE EXTENDED-RELEASE TABLETS (RHODES 74-769, 74-862) [Suspect]
     Active Substance: MORPHINE SULFATE
     Indication: PRODUCT USED FOR UNKNOWN INDICATION
     Dosage: UNK
     Route: 048
  6. OXYCODONE HCL CR TABLETS (SIMILAR TO NDA 22-272) [Suspect]
     Active Substance: OXYCODONE HYDROCHLORIDE
     Indication: PRODUCT USED FOR UNKNOWN INDICATION
     Dosage: UNK
     Route: 048
  7. OXYCODONE/ ACETAMINOPHEN TABLETS [Suspect]
     Active Substance: ACETAMINOPHEN\OXYCODONE HYDROCHLORIDE
     Indication: PRODUCT USED FOR UNKNOWN INDICATION
     Dosage: UNK
     Route: 048
  8. OXYCONTIN [Suspect]
     Active Substance: OXYCODONE HYDROCHLORIDE
     Indication: PAIN
     Dosage: 640 MG, DAILY
     Route: 048

REACTIONS (22)
  - Drug dependence [Unknown]
  - Intervertebral disc degeneration [Unknown]
  - Systemic lupus erythematosus [Unknown]
  - Dermatomyositis [Unknown]
  - Decubitus ulcer [Unknown]
  - Inadequate analgesia [Unknown]
  - Interstitial lung disease [Unknown]
  - Pancreatitis [Unknown]
  - Sleep disorder [Unknown]
  - Pneumonia [Unknown]
  - Hospitalisation [Unknown]
  - Muscular weakness [Unknown]
  - Atrophy [Unknown]
  - Asthenia [Unknown]
  - Fatigue [Unknown]
  - Respiratory failure [Unknown]
  - Dry skin [Unknown]
  - Polymyositis [Unknown]
  - Oxygen therapy [Unknown]
  - Muscle atrophy [Unknown]
  - Hyperkeratosis [Unknown]
  - Skin fissures [Unknown]

NARRATIVE: CASE EVENT DATE: 201509
